FAERS Safety Report 21752023 (Version 1)
Quarter: 2022Q4

REPORT INFORMATION
  Report Type: Spontaneous
  Country: CN (occurrence: CN)
  Receive Date: 20221220
  Receipt Date: 20221220
  Transmission Date: 20230113
  Serious: Yes (Other)
  Sender: FDA-Public Use
  Company Number: CN-SUN PHARMACEUTICAL INDUSTRIES LTD-2022R1-369130

PATIENT
  Age: 61 Year
  Sex: Female

DRUGS (3)
  1. CARBOPLATIN [Suspect]
     Active Substance: CARBOPLATIN
     Indication: Chemotherapy
     Dosage: 0.5 GRAM, DAILY
     Route: 065
     Dates: start: 20190907
  2. PEMETREXED [Suspect]
     Active Substance: PEMETREXED
     Indication: Chemotherapy
     Dosage: 0.8 GRAM, DAILY
     Route: 065
     Dates: start: 20190803
  3. PEMETREXED [Suspect]
     Active Substance: PEMETREXED
     Dosage: 0.5 GRAM, DAILY
     Route: 065
     Dates: start: 20190907

REACTIONS (2)
  - Disease progression [Unknown]
  - Therapy partial responder [Unknown]
